FAERS Safety Report 4989498-8 (Version None)
Quarter: 2006Q2

REPORT INFORMATION
  Report Type: 
  Country: None (occurrence: None)
  Receive Date: 20060502
  Receipt Date: 20050426
  Transmission Date: 20061013
  Serious: Yes (Hospitalization, Disabling, Other)
  Sender: FDA-Public Use
  Company Number: US-MERCK-0504USA04783

PATIENT
  Age: 50 Year
  Sex: Female
  Weight: 59 kg

DRUGS (2)
  1. VIOXX [Suspect]
     Indication: BACK PAIN
     Route: 048
     Dates: start: 20010208
  2. VIOXX [Suspect]
     Route: 048
     Dates: end: 20030101

REACTIONS (51)
  - ADVERSE DRUG REACTION [None]
  - ANXIETY [None]
  - ARTHROPOD BITE [None]
  - BLINDNESS [None]
  - BLOOD PRESSURE ABNORMAL [None]
  - CARDIAC DISORDER [None]
  - CATARACT [None]
  - CEREBROVASCULAR ACCIDENT [None]
  - CHEST PAIN [None]
  - CHLOASMA [None]
  - CHOLELITHIASIS [None]
  - COLONIC POLYP [None]
  - CORNEAL ABRASION [None]
  - CORNEAL DISORDER [None]
  - CYSTITIS [None]
  - DEPRESSION [None]
  - DRY EYE [None]
  - EPISTAXIS [None]
  - ERYTHEMA [None]
  - EYE DISORDER [None]
  - FALL [None]
  - HEART RATE INCREASED [None]
  - HERPES ZOSTER [None]
  - HYPERCHOLESTEROLAEMIA [None]
  - HYPERSENSITIVITY [None]
  - HYPERTENSION [None]
  - HYPOKALAEMIA [None]
  - HYPOTHYROIDISM [None]
  - IRRITABLE BOWEL SYNDROME [None]
  - KERATITIS [None]
  - LICHENOID KERATOSIS [None]
  - MACULAR OEDEMA [None]
  - MYOCARDIAL INFARCTION [None]
  - NASAL CONGESTION [None]
  - OEDEMA PERIPHERAL [None]
  - OPTIC NEUROPATHY [None]
  - ORGAN FAILURE [None]
  - PARAESTHESIA [None]
  - PLATELET COUNT DECREASED [None]
  - POST PROCEDURAL HAEMORRHAGE [None]
  - PULMONARY EMBOLISM [None]
  - RENAL CYST [None]
  - RETINAL VEIN OCCLUSION [None]
  - SEBORRHOEIC KERATOSIS [None]
  - SINUS DISORDER [None]
  - SINUSITIS [None]
  - SLEEP APNOEA SYNDROME [None]
  - SWELLING FACE [None]
  - THROMBOCYTOPENIA [None]
  - THROMBOSIS [None]
  - UPPER LIMB FRACTURE [None]
